FAERS Safety Report 11282541 (Version 1)
Quarter: 2015Q3

REPORT INFORMATION
  Report Type: Spontaneous
  Country: US (occurrence: US)
  Receive Date: 20150720
  Receipt Date: 20150720
  Transmission Date: 20151125
  Serious: Yes (Hospitalization)
  Sender: FDA-Public Use
  Company Number: US-HOSPIRA-2940753

PATIENT
  Age: 52 Year
  Sex: Male
  Weight: 103.42 kg

DRUGS (1)
  1. KETOROLAC [Suspect]
     Active Substance: KETOROLAC\KETOROLAC TROMETHAMINE
     Indication: BACK PAIN
     Dosage: X1
     Route: 030
     Dates: start: 20150707

REACTIONS (3)
  - Product quality issue [Unknown]
  - Drug administration error [Unknown]
  - Pyrexia [Unknown]

NARRATIVE: CASE EVENT DATE: 20150707
